FAERS Safety Report 4721237-8 (Version None)
Quarter: 2005Q3

REPORT INFORMATION
  Report Type: 
  Country: None (occurrence: None)
  Receive Date: 20050722
  Receipt Date: 20050713
  Transmission Date: 20060218
  Serious: Yes (Other)
  Sender: FDA-Public Use
  Company Number: US-JNJFOC-20050601113

PATIENT
  Sex: Female
  Weight: 80.74 kg

DRUGS (7)
  1. REMICADE [Suspect]
     Dosage: X3
     Route: 042
  2. REMICADE [Suspect]
     Route: 042
  3. REMICADE [Suspect]
     Route: 042
  4. REMICADE [Suspect]
     Route: 042
  5. REMICADE [Suspect]
     Indication: CROHN'S DISEASE
     Route: 042
  6. MESALAMINE [Concomitant]
     Indication: CROHN'S DISEASE
  7. PREDNISONE [Concomitant]

REACTIONS (5)
  - BREAST CANCER [None]
  - DRUG EXPOSURE DURING PREGNANCY [None]
  - METASTASES TO BONE [None]
  - METASTATIC NEOPLASM [None]
  - PREGNANCY [None]
